FAERS Safety Report 9720719 (Version 3)
Quarter: 2014Q1

REPORT INFORMATION
  Report Type: Spontaneous
  Country: JP (occurrence: JP)
  Receive Date: 20131129
  Receipt Date: 20140319
  Transmission Date: 20141002
  Serious: Yes (Other)
  Sender: FDA-Public Use
  Company Number: PHHY2013JP138415

PATIENT
  Age: 11 Year
  Sex: Female

DRUGS (3)
  1. TEGRETOL [Suspect]
     Indication: EPILEPSY
     Dosage: 2 DF DAILY
     Route: 048
     Dates: start: 20131125
  2. TEGRETOL [Suspect]
     Indication: CONVULSION
     Dosage: 200 MG, DAILY
     Route: 048
  3. TEGRETOL [Suspect]
     Dosage: 300 MG, DAILY
     Route: 048
     Dates: start: 20131225

REACTIONS (1)
  - Hearing impaired [Recovered/Resolved]
